FAERS Safety Report 10181205 (Version 2)
Quarter: 2014Q2

REPORT INFORMATION
  Report Type: Spontaneous
  Country: US (occurrence: US)
  Receive Date: 20140519
  Receipt Date: 20140519
  Transmission Date: 20141212
  Serious: No
  Sender: FDA-Public Use
  Company Number: US-AMGEN-USASP2014024376

PATIENT
  Age: 71 Year
  Sex: Female

DRUGS (14)
  1. PROLIA [Suspect]
     Indication: OSTEOPOROSIS POSTMENOPAUSAL
     Dosage: 60 MG, Q6MO
     Route: 065
  2. SPIRONOLACTONE [Concomitant]
  3. EVISTA [Concomitant]
  4. IRBESARTAN + HIDROCLOROTIAZIDA ACTAVIS [Concomitant]
  5. METOPROLOL [Concomitant]
  6. SINGULAIR [Concomitant]
  7. AZATHIOPRINE [Concomitant]
  8. LEVOTHYROXINE [Concomitant]
  9. WARFARIN SODIUM [Concomitant]
  10. ZYRTEC [Concomitant]
  11. CITRACAL                           /00751520/ [Concomitant]
  12. SALMON OIL [Concomitant]
  13. FISH OIL [Concomitant]
  14. TRAMADOL [Concomitant]
     Indication: PAIN

REACTIONS (2)
  - Bone pain [Recovered/Resolved]
  - Musculoskeletal pain [Recovered/Resolved]
